FAERS Safety Report 10959412 (Version 2)
Quarter: 2018Q1

REPORT INFORMATION
  Report Type: Report from Study
  Country: CN (occurrence: CN)
  Receive Date: 20150327
  Receipt Date: 20180111
  Transmission Date: 20180508
  Serious: Yes (Other)
  Sender: FDA-Public Use
  Company Number: CN-ROCHE-1555576

PATIENT

DRUGS (4)
  1. METHYLPREDNISOLONE. [Suspect]
     Active Substance: METHYLPREDNISOLONE
     Indication: LUPUS NEPHRITIS
     Dosage: 0.5 G/DAY FOR 3 DAYS
     Route: 042
  2. PREDNISONE. [Suspect]
     Active Substance: PREDNISONE
     Indication: LUPUS NEPHRITIS
     Dosage: 0.6 MG/KG PER DAY EVERY MORNING FOR 4 WEEKS
     Route: 048
  3. MYCOPHENOLATE MOFETIL. [Suspect]
     Active Substance: MYCOPHENOLATE MOFETIL
     Indication: LUPUS NEPHRITIS
     Dosage: 0.5 G TWICE DAILY
     Route: 065
  4. TACROLIMUS. [Suspect]
     Active Substance: TACROLIMUS
     Indication: LUPUS NEPHRITIS
     Dosage: 2 MG TWICE DAILY
     Route: 065

REACTIONS (6)
  - Pneumonia [Recovering/Resolving]
  - Upper respiratory tract infection [Recovering/Resolving]
  - Epilepsy [Recovering/Resolving]
  - Blood creatinine increased [Recovering/Resolving]
  - Varicella zoster virus infection [Recovering/Resolving]
  - Osteonecrosis [Unknown]
